FAERS Safety Report 15478329 (Version 1)
Quarter: 2018Q4

REPORT INFORMATION
  Report Type: Spontaneous
  Country: US (occurrence: US)
  Receive Date: 20181002
  Receipt Date: 20181002
  Transmission Date: 20190205
  Serious: Yes (Hospitalization)
  Sender: FDA-Public Use
  Company Number: None

PATIENT
  Age: 1 Year
  Sex: Female

DRUGS (6)
  1. ONFI [Concomitant]
     Active Substance: CLOBAZAM
  2. PHENOBARB [Concomitant]
     Active Substance: PHENOBARBITAL SODIUM
  3. LEVETIRACEETA [Concomitant]
  4. VITAMIN D [Concomitant]
     Active Substance: CHOLECALCIFEROL
  5. VIGABATRIN 500MG PWD [Suspect]
     Active Substance: VIGABATRIN
     Indication: EPILEPSY
     Route: 048
     Dates: start: 20180315
  6. SIMETHICONE (DIMETHICONE) [Concomitant]
     Active Substance: DIMETHICONE

REACTIONS (1)
  - Seizure [None]

NARRATIVE: CASE EVENT DATE: 20180919
